FAERS Safety Report 7253870-6 (Version None)
Quarter: 2011Q1

REPORT INFORMATION
  Report Type: 
  Country: None (occurrence: None)
  Receive Date: 20110129
  Receipt Date: 20100426
  Transmission Date: 20110831
  Serious: No
  Sender: FDA-Public Use
  Company Number: US-ABBOTT-10P-163-0640850-00

PATIENT
  Sex: Male

DRUGS (1)
  1. HUMIRA [Suspect]
     Indication: COLITIS ULCERATIVE
     Dosage: DAY 1

REACTIONS (4)
  - DIARRHOEA HAEMORRHAGIC [None]
  - FEELING ABNORMAL [None]
  - PYREXIA [None]
  - FREQUENT BOWEL MOVEMENTS [None]
